FAERS Safety Report 9407751 (Version 1)
Quarter: 2013Q3

REPORT INFORMATION
  Report Type: Spontaneous
  Country: US (occurrence: None)
  Receive Date: 20130717
  Receipt Date: 20130717
  Transmission Date: 20140515
  Serious: Yes (Other)
  Sender: FDA-Public Use
  Company Number: None

PATIENT
  Sex: Female

DRUGS (1)
  1. HUMIRA PFS 40 MG ABB VIE [Suspect]
     Route: 058
     Dates: start: 20120111

REACTIONS (4)
  - Anxiety [None]
  - Panic attack [None]
  - Confusional state [None]
  - Crying [None]
